FAERS Safety Report 9069282 (Version 1)
Quarter: 2013Q1

REPORT INFORMATION
  Report Type: Spontaneous
  Country: US (occurrence: US)
  Receive Date: 20130131
  Receipt Date: 20130131
  Transmission Date: 20140127
  Serious: No
  Sender: FDA-Public Use
  Company Number: US-ABBOTT-12P-163-0998966-00

PATIENT
  Sex: Female
  Weight: 67.19 kg

DRUGS (1)
  1. HUMIRA [Suspect]
     Indication: PSORIASIS
     Dates: start: 201205, end: 20120928

REACTIONS (10)
  - Muscle spasms [Recovered/Resolved]
  - Cystitis [Recovering/Resolving]
  - Vaginitis bacterial [Recovered/Resolved]
  - Back pain [Recovered/Resolved]
  - Injection site pain [Recovered/Resolved]
  - Pain [Recovered/Resolved]
  - Vaginal haemorrhage [Recovered/Resolved]
  - Fatigue [Unknown]
  - Blood urine present [Unknown]
  - Onychomycosis [Not Recovered/Not Resolved]
